FAERS Safety Report 4494428-1 (Version None)
Quarter: 2004Q4

REPORT INFORMATION
  Report Type: 
  Country: None (occurrence: None)
  Receive Date: 20041102
  Receipt Date: 20041015
  Transmission Date: 20050328
  Serious: Yes (Congenital Anomaly, Other)
  Sender: FDA-Public Use
  Company Number: EWC040237895

PATIENT
  Age: 1 Day
  Sex: Female
  Weight: 3 kg

DRUGS (6)
  1. PERGOLIDE MESYLATE [Suspect]
     Dates: start: 20030301, end: 20031210
  2. FRAXIPARINE (HEPARIN-FRACTION, CALCIUM SALT) [Concomitant]
  3. ITINEROL [Concomitant]
  4. AUGMENTIN '125' [Concomitant]
  5. GYNO-TARDYFERON [Concomitant]
  6. FLAGYL [Concomitant]

REACTIONS (4)
  - DEAFNESS UNILATERAL [None]
  - DERMOID CYST [None]
  - DRUG EXPOSURE DURING PREGNANCY [None]
  - FACIAL DYSMORPHISM [None]
